FAERS Safety Report 5290218-0 (Version None)
Quarter: 2007Q2

REPORT INFORMATION
  Report Type: 
  Country: None (occurrence: None)
  Receive Date: 20070402
  Receipt Date: 20070315
  Transmission Date: 20071010
  Serious: Yes (Death, Life-Threatening, Hospitalization, Other)
  Sender: FDA-Public Use
  Company Number: DSA_29606_2007

PATIENT
  Age: 65 Year
  Sex: Female

DRUGS (2)
  1. ENALAPRIL MALEATE [Suspect]
     Dosage: DF
  2. CLARITHROMYCIN [Suspect]
     Dosage: DF

REACTIONS (1)
  - ANAPHYLACTIC REACTION [None]
